FAERS Safety Report 7523094-3 (Version None)
Quarter: 2011Q2

REPORT INFORMATION
  Report Type: 
  Country: None (occurrence: None)
  Receive Date: 20110603
  Receipt Date: 20110524
  Transmission Date: 20111010
  Serious: Yes (Other)
  Sender: FDA-Public Use
  Company Number: BR-SANOFI-AVENTIS-2011SA032922

PATIENT
  Sex: Male
  Weight: 130 kg

DRUGS (10)
  1. CYANOCOBALAMIN/PYRIDOXINE/THIAMINE [Concomitant]
     Indication: VITAMIN SUPPLEMENTATION
     Route: 048
     Dates: start: 20030101
  2. LANTUS [Suspect]
     Indication: TYPE 2 DIABETES MELLITUS
     Route: 058
  3. GLUCOFORMIN [Concomitant]
     Indication: TYPE 2 DIABETES MELLITUS
     Dosage: THREE, 850 MG TABLETS A DAY
     Route: 048
  4. AUTOPEN 24 [Suspect]
  5. ASPIRIN [Concomitant]
     Route: 048
     Dates: start: 20030101
  6. CAPTOPRIL [Concomitant]
     Route: 048
  7. NOVORAPID [Concomitant]
     Indication: TYPE 2 DIABETES MELLITUS
     Dosage: 14 TO 20 IU DAILY
     Route: 058
  8. SIMVASTATIN [Concomitant]
     Indication: PROPHYLAXIS
     Route: 048
     Dates: start: 20040101
  9. LEVOTHYROXINE SODIUM [Concomitant]
     Indication: HYPOTHYROIDISM
     Route: 048
  10. CLORANA [Concomitant]
     Indication: DIURETIC THERAPY
     Route: 048
     Dates: start: 20030101

REACTIONS (3)
  - COLD SWEAT [None]
  - EYE DISORDER [None]
  - HYPOGLYCAEMIA [None]
